FAERS Safety Report 5460145-4 (Version None)
Quarter: 2007Q3

REPORT INFORMATION
  Report Type: 
  Country: None (occurrence: None)
  Receive Date: 20070919
  Receipt Date: 20070522
  Transmission Date: 20080115
  Serious: Yes (Other)
  Sender: FDA-Public Use
  Company Number: US-ASTRAZENECA-2007UW12669

PATIENT
  Age: 43 Year
  Sex: Female
  Weight: 55.3 kg

DRUGS (7)
  1. SEROQUEL [Suspect]
     Indication: SCHIZOPHRENIA
     Route: 048
  2. ZOLOFT [Concomitant]
  3. ZYPREXA [Concomitant]
  4. EFFEXOR [Concomitant]
  5. KLONOPIN [Concomitant]
  6. LOTENSIN [Concomitant]
     Indication: HYPERCHOLESTEROLAEMIA
  7. ADVANAMET [Concomitant]

REACTIONS (2)
  - CONVULSION [None]
  - DIABETES MELLITUS [None]
